FAERS Safety Report 22298067 (Version 1)
Quarter: 2023Q2

REPORT INFORMATION
  Report Type: Spontaneous
  Country: ES (occurrence: ES)
  Receive Date: 20230509
  Receipt Date: 20230509
  Transmission Date: 20230721
  Serious: Yes (Hospitalization)
  Sender: FDA-Public Use
  Company Number: None

PATIENT
  Age: 54 Year
  Sex: Male
  Weight: 90 kg

DRUGS (2)
  1. ATORVASTATIN [Suspect]
     Active Substance: ATORVASTATIN
     Indication: Dyslipidaemia
     Dosage: 20 MG, QD, INITIALLY 20 MG/DAY, THEN 10MG/DAY
     Route: 048
     Dates: start: 20170208, end: 20191128
  2. ATORVASTATIN [Suspect]
     Active Substance: ATORVASTATIN
     Dosage: 10 MILLIGRAM, QD
     Route: 048
     Dates: start: 20191129, end: 20230216

REACTIONS (1)
  - Dermatomyositis [Not Recovered/Not Resolved]

NARRATIVE: CASE EVENT DATE: 20230206
